FAERS Safety Report 6398820-X (Version None)
Quarter: 2009Q4

REPORT INFORMATION
  Report Type: 
  Country: None (occurrence: None)
  Receive Date: 20091013
  Receipt Date: 20091005
  Transmission Date: 20100525
  Serious: Yes (Disabling)
  Sender: FDA-Public Use
  Company Number: GB-B.I. PHARMACEUTICALS,INC./RIDGEFIELD-2009-UK-00659UK

PATIENT
  Age: 57 Year
  Sex: Male
  Weight: 80 kg

DRUGS (4)
  1. PRAMIPEXOLE [Suspect]
     Indication: PARKINSON'S DISEASE
     Route: 048
     Dates: start: 20081201, end: 20090701
  2. AMLODIPINE [Concomitant]
     Indication: HYPERTENSION
     Route: 048
  3. DICLOFENAC [Concomitant]
     Indication: PAIN
     Dosage: 150 MG
     Route: 048
  4. SILDENAFIL CITRATE [Concomitant]
     Route: 048

REACTIONS (1)
  - ALVEOLITIS FIBROSING [None]
